FAERS Safety Report 19858294 (Version 1)
Quarter: 2021Q3

REPORT INFORMATION
  Report Type: Spontaneous
  Country: US (occurrence: US)
  Receive Date: 20210921
  Receipt Date: 20210921
  Transmission Date: 20211014
  Serious: No
  Sender: FDA-Public Use
  Company Number: US-AUROBINDO-AUR-APL-2021-025732

PATIENT
  Age: 82 Year
  Sex: Female
  Weight: 72.5 kg

DRUGS (1)
  1. ALENDRONATE SODIUM TABLETS USP 70MG [Suspect]
     Active Substance: ALENDRONATE SODIUM
     Indication: BONE DISORDER
     Dosage: 1 DOSAGE FORM, EVERY WEEK
     Route: 065

REACTIONS (1)
  - Pruritus [Not Recovered/Not Resolved]
